FAERS Safety Report 22003066 (Version 2)
Quarter: 2023Q1

REPORT INFORMATION
  Report Type: Report from Study
  Country: US (occurrence: US)
  Receive Date: 20230217
  Receipt Date: 20230315
  Transmission Date: 20230418
  Serious: Yes (Hospitalization, Other)
  Sender: FDA-Public Use
  Company Number: US-TAKEDA-2023TUS016099

PATIENT
  Sex: Male

DRUGS (2)
  1. MARIBAVIR [Suspect]
     Active Substance: MARIBAVIR
     Indication: Cytomegalovirus infection
     Dosage: 2 DOSAGE FORM, BID
     Route: 048
  2. MARIBAVIR [Suspect]
     Active Substance: MARIBAVIR
     Dosage: 2 DOSAGE FORM, BID
     Route: 048
     Dates: start: 20230216

REACTIONS (10)
  - Haemoglobin decreased [Unknown]
  - Full blood count decreased [Unknown]
  - Pneumonia [Unknown]
  - Loss of consciousness [Unknown]
  - Dizziness [Unknown]
  - Disorientation [Unknown]
  - Blood pressure decreased [Unknown]
  - Fall [Unknown]
  - Head injury [Unknown]
  - Dysgeusia [Unknown]
